FAERS Safety Report 20447795 (Version 1)
Quarter: 2022Q1

REPORT INFORMATION
  Report Type: Spontaneous
  Country: US (occurrence: US)
  Receive Date: 20220209
  Receipt Date: 20220209
  Transmission Date: 20220423
  Serious: No
  Sender: FDA-Public Use
  Company Number: US-BIOVITRUM-2021US11439

PATIENT
  Age: 45 Year
  Sex: Female

DRUGS (2)
  1. KINERET [Suspect]
     Active Substance: ANAKINRA
     Indication: Cryopyrin associated periodic syndrome
     Route: 058
     Dates: start: 20190424
  2. KINERET [Suspect]
     Active Substance: ANAKINRA
     Route: 058
     Dates: start: 201904

REACTIONS (8)
  - Fatigue [Unknown]
  - Laboratory test abnormal [Unknown]
  - Cough [Unknown]
  - COVID-19 [Unknown]
  - Hepatic enzyme increased [Recovering/Resolving]
  - Headache [Unknown]
  - Product dose omission issue [Unknown]
  - Off label use [Unknown]

NARRATIVE: CASE EVENT DATE: 20190424
